FAERS Safety Report 15730205 (Version 1)
Quarter: 2018Q4

REPORT INFORMATION
  Report Type: Spontaneous
  Country: US (occurrence: US)
  Receive Date: 20181217
  Receipt Date: 20181217
  Transmission Date: 20190205
  Serious: Yes (Other)
  Sender: FDA-Public Use
  Company Number: US-BAYER-2018-228327

PATIENT
  Age: 69 Year
  Sex: Male

DRUGS (13)
  1. GABAPENTIN. [Concomitant]
     Active Substance: GABAPENTIN
  2. ONDANSETRON [Concomitant]
     Active Substance: ONDANSETRON
  3. OXYCODONE [Concomitant]
     Active Substance: OXYCODONE
  4. LORATADINE. [Concomitant]
     Active Substance: LORATADINE
  5. STIVARGA [Suspect]
     Active Substance: REGORAFENIB
     Indication: COLORECTAL CANCER
     Dosage: 80 MG DAILY FOR 21 DAYS THEN 7 DAYS OFF
     Route: 048
     Dates: start: 20180510, end: 2018
  6. HYDROCORTISONE. [Concomitant]
     Active Substance: HYDROCORTISONE
  7. POTASSIUM CHLORIDE. [Concomitant]
     Active Substance: POTASSIUM CHLORIDE
  8. ELIQUIS [Concomitant]
     Active Substance: APIXABAN
  9. CYANOCOBALAMIN. [Concomitant]
     Active Substance: CYANOCOBALAMIN
  10. DIPHENOXYLATE/ATROPINE [Concomitant]
     Active Substance: ATROPINE\DIPHENOXYLATE
  11. TAMSULOSIN [Concomitant]
     Active Substance: TAMSULOSIN
  12. ASPIRIN [ACETYLSALICYLIC ACID] [Concomitant]
     Active Substance: ASPIRIN
  13. DOCUSATE SODIUM. [Concomitant]
     Active Substance: DOCUSATE SODIUM

REACTIONS (2)
  - Colorectal cancer [Not Recovered/Not Resolved]
  - Off label use [None]

NARRATIVE: CASE EVENT DATE: 20180510
